FAERS Safety Report 14350305 (Version 3)
Quarter: 2018Q1

REPORT INFORMATION
  Report Type: Spontaneous
  Country: US (occurrence: US)
  Receive Date: 20180104
  Receipt Date: 20180316
  Transmission Date: 20180509
  Serious: No
  Sender: FDA-Public Use
  Company Number: US-PFIZER INC-2018003441

PATIENT
  Age: 75 Year
  Sex: Male
  Weight: 106 kg

DRUGS (1)
  1. XELJANZ XR [Suspect]
     Active Substance: TOFACITINIB CITRATE
     Indication: RHEUMATOID ARTHRITIS
     Dosage: 11 MG, DAILY (11MG ONE TABLET BY MOUTH EVERY DAY)
     Route: 048
     Dates: start: 2017, end: 20180101

REACTIONS (2)
  - Drug ineffective [Unknown]
  - Feeling abnormal [Unknown]
